FAERS Safety Report 15556372 (Version 5)
Quarter: 2019Q2

REPORT INFORMATION
  Report Type: Spontaneous
  Country: AT (occurrence: AT)
  Receive Date: 20181026
  Receipt Date: 20190514
  Transmission Date: 20190711
  Serious: Yes (Life-Threatening, Hospitalization, Other)
  Sender: FDA-Public Use
  Company Number: AT-SA-2018SA294502

PATIENT
  Age: 32 Year
  Sex: Female
  Weight: 64 kg

DRUGS (10)
  1. LEMTRADA [Suspect]
     Active Substance: ALEMTUZUMAB
     Indication: MULTIPLE SCLEROSIS
     Dosage: 12 MG, QD
     Route: 041
     Dates: start: 20160120, end: 20160124
  2. CEFPODOXIME PROXETIL. [Suspect]
     Active Substance: CEFPODOXIME PROXETIL
     Route: 065
  3. KINERET [Concomitant]
     Active Substance: ANAKINRA
     Dosage: UNK UNK, BID
     Route: 065
  4. PANTOLOC [PANTOPRAZOLE] [Concomitant]
     Active Substance: PANTOPRAZOLE SODIUM
     Dosage: UNK UNK, QD
     Route: 048
  5. PREGABALIN. [Concomitant]
     Active Substance: PREGABALIN
     Dosage: UNK UNK, QD
     Route: 048
  6. URBASON [METHYLPREDNISOLONE] [Concomitant]
     Active Substance: METHYLPREDNISOLONE
     Dosage: UNK UNK, QD
     Route: 048
  7. LEMTRADA [Suspect]
     Active Substance: ALEMTUZUMAB
     Dosage: 12 MG FOR 3 DAYS
     Route: 041
     Dates: start: 20170201
  8. SERTRALINE [Concomitant]
     Active Substance: SERTRALINE HYDROCHLORIDE
     Dosage: UNK UNK, QD
     Route: 048
  9. MAXI-KALZ [CALCIUM CARBONATE] [Concomitant]
     Dosage: UNK UNK, QD
     Route: 048
  10. PROLIA [Concomitant]
     Active Substance: DENOSUMAB
     Dosage: UNK UNK, QD
     Route: 065
     Dates: start: 20181017

REACTIONS (29)
  - Pyrexia [Recovered/Resolved with Sequelae]
  - Arthralgia [Recovered/Resolved with Sequelae]
  - General physical health deterioration [Unknown]
  - Rash [Unknown]
  - Pain [Recovered/Resolved with Sequelae]
  - Renal failure [Unknown]
  - Hepatosplenomegaly [Recovered/Resolved with Sequelae]
  - C-reactive protein [Recovered/Resolved with Sequelae]
  - Respiratory disorder [Unknown]
  - Pericardial effusion [Unknown]
  - Sepsis [Unknown]
  - Laboratory test abnormal [Not Recovered/Not Resolved]
  - Influenza [Recovered/Resolved]
  - Gastrectomy [Recovered/Resolved]
  - Tobacco abuse [Unknown]
  - Pyrexia [Recovered/Resolved]
  - Hypothyroidism [Unknown]
  - Anaemia [Unknown]
  - Hepatic enzyme increased [Unknown]
  - Depression [Unknown]
  - Pleural effusion [Unknown]
  - Sleep disorder [Unknown]
  - Serum ferritin [Recovered/Resolved with Sequelae]
  - Haemophagocytic lymphohistiocytosis [Recovered/Resolved with Sequelae]
  - Tachycardia [Recovered/Resolved with Sequelae]
  - Condition aggravated [Recovered/Resolved with Sequelae]
  - Leukocytosis [Unknown]
  - Hypertriglyceridaemia [Unknown]
  - Asthenia [Recovered/Resolved]

NARRATIVE: CASE EVENT DATE: 201710
